FAERS Safety Report 16347554 (Version 1)
Quarter: 2019Q2

REPORT INFORMATION
  Report Type: Spontaneous
  Country: FR (occurrence: FR)
  Receive Date: 20190523
  Receipt Date: 20190523
  Transmission Date: 20190711
  Serious: Yes (Hospitalization)
  Sender: FDA-Public Use
  Company Number: FR-MYLANLABS-2019M1046976

PATIENT
  Age: 53 Year
  Sex: Male
  Weight: 62 kg

DRUGS (2)
  1. PIPERACILLIN,TAZOBACTAM MYLAN [Suspect]
     Active Substance: PIPERACILLIN SODIUM\TAZOBACTAM SODIUM
     Indication: ACUTE SINUSITIS
     Dosage: 3 DOSAGE FORM, QD
     Route: 041
     Dates: start: 20180925, end: 20181002
  2. CIPROFLOXACINE ARROW [Suspect]
     Active Substance: CIPROFLOXACIN
     Indication: ACUTE SINUSITIS
     Dosage: 2 DOSAGE FORM, QD
     Route: 048
     Dates: start: 20180925, end: 20181001

REACTIONS (2)
  - Hepatocellular injury [Recovering/Resolving]
  - Rash [Recovered/Resolved]

NARRATIVE: CASE EVENT DATE: 20180929
